FAERS Safety Report 18300419 (Version 1)
Quarter: 2020Q3

REPORT INFORMATION
  Report Type: Spontaneous
  Country: US (occurrence: US)
  Receive Date: 20200923
  Receipt Date: 20200923
  Transmission Date: 20201103
  Serious: Yes (Other)
  Sender: FDA-Public Use
  Company Number: US-BIOVITRUM-2020US4955

PATIENT
  Age: 12 Year
  Sex: Male

DRUGS (6)
  1. FOSPHENYTOIN [Concomitant]
     Active Substance: FOSPHENYTOIN
  2. LORAZEPAM. [Concomitant]
     Active Substance: LORAZEPAM
  3. AMPICILLIN?SULBACTUM [Concomitant]
     Active Substance: AMPICILLIN SODIUM\SULBACTAM SODIUM
  4. LEVETIRACETAM. [Concomitant]
     Active Substance: LEVETIRACETAM
  5. OXCARBAZEPINE. [Concomitant]
     Active Substance: OXCARBAZEPINE
  6. ANAKINRA [Suspect]
     Active Substance: ANAKINRA
     Indication: AUTOINFLAMMATORY DISEASE

REACTIONS (8)
  - Partial seizures [Unknown]
  - Psychomotor hyperactivity [Unknown]
  - Mental status changes [Recovered/Resolved]
  - Depressed level of consciousness [Unknown]
  - Agitation [Unknown]
  - Disorganised speech [Unknown]
  - Affect lability [Unknown]
  - Off label use [Unknown]
